FAERS Safety Report 9505718 (Version 1)
Quarter: 2013Q1

REPORT INFORMATION
  Report Type: Spontaneous
  Country: US (occurrence: None)
  Receive Date: 20130220
  Receipt Date: 20130220
  Transmission Date: 20140127
  Serious: No
  Sender: FDA-Public Use
  Company Number: 1000041045

PATIENT
  Age: 57 Year
  Sex: Female

DRUGS (6)
  1. VIIBRYD [Suspect]
     Indication: DEPRESSION
     Route: 048
     Dates: start: 20121109, end: 20121110
  2. RESTORIL (TEMAZEPAM) (TEMZEPAM) [Concomitant]
  3. DESYREL (TRAZODONE HYDROCHLORIDE) (TRAZODONE HYDROCHLORIDE) [Concomitant]
  4. XANAX (ALPRAZOLAM) (ALPRAZOLAM) [Concomitant]
  5. MS CONTIN (MORPHINE SULFATE) (MORPHINE SULFATE) [Concomitant]
  6. NEXIUM (ESOMEPRAZOLE) (ESOMEPRAZOLE) [Concomitant]

REACTIONS (6)
  - Insomnia [None]
  - Decreased appetite [None]
  - Diarrhoea [None]
  - Pain [None]
  - Abdominal pain [None]
  - Nausea [None]
